FAERS Safety Report 18238619 (Version 1)
Quarter: 2020Q3

REPORT INFORMATION
  Report Type: Spontaneous
  Country: US (occurrence: US)
  Receive Date: 20200907
  Receipt Date: 20200907
  Transmission Date: 20201103
  Serious: Yes (Hospitalization, Other)
  Sender: FDA-Public Use
  Company Number: US-BRISTOL-MYERS SQUIBB COMPANY-BMS-2020-070490

PATIENT
  Age: 47 Year
  Sex: Male

DRUGS (7)
  1. WARFARIN SODIUM. [Interacting]
     Active Substance: WARFARIN SODIUM
     Dosage: 40 MILLIGRAM
     Route: 048
  2. WARFARIN SODIUM. [Interacting]
     Active Substance: WARFARIN SODIUM
     Dosage: 20 MILLIGRAM, QD
     Route: 048
  3. DICLOXACILLIN SODIUM. [Interacting]
     Active Substance: DICLOXACILLIN SODIUM
     Indication: STAPHYLOCOCCAL INFECTION
     Dosage: 500 MILLIGRAM, Q6H
     Route: 065
  4. NAFCILLIN [NAFCILLIN SODIUM] [Interacting]
     Active Substance: NAFCILLIN SODIUM
     Dosage: 1 GRAM, Q6H
  5. WARFARIN SODIUM. [Suspect]
     Active Substance: WARFARIN SODIUM
     Indication: DEEP VEIN THROMBOSIS
     Dosage: 15 MILLIGRAM, QD
     Route: 048
  6. WARFARIN SODIUM. [Interacting]
     Active Substance: WARFARIN SODIUM
     Dosage: 25 MILLIGRAM
     Route: 048
  7. NAFCILLIN [NAFCILLIN SODIUM] [Interacting]
     Active Substance: NAFCILLIN SODIUM
     Indication: STAPHYLOCOCCAL INFECTION
     Dosage: UNK
     Route: 065

REACTIONS (2)
  - Anticoagulation drug level below therapeutic [Unknown]
  - Drug interaction [Unknown]
